FAERS Safety Report 25835678 (Version 2)
Quarter: 2025Q4

REPORT INFORMATION
  Report Type: Report from Study
  Country: MX (occurrence: MX)
  Receive Date: 20250923
  Receipt Date: 20251202
  Transmission Date: 20260117
  Serious: Yes (Hospitalization)
  Sender: DAIICHI
  Company Number: MX-AstraZeneca-CH-00949843A

PATIENT
  Sex: Female
  Weight: 56 kg

DRUGS (5)
  1. ENHERTU [Suspect]
     Active Substance: FAM-TRASTUZUMAB DERUXTECAN-NXKI
     Indication: Breast cancer
     Dosage: 356 MG, ONCE EVERY 3 WK
     Route: 042
     Dates: start: 20250805
  2. ENHERTU [Suspect]
     Active Substance: FAM-TRASTUZUMAB DERUXTECAN-NXKI
     Indication: HER2 positive breast cancer
  3. PALONOSETRON [Concomitant]
     Active Substance: PALONOSETRON
     Indication: Neuropathy peripheral
     Dosage: UNK UNK, ONCE EVERY 8HR
     Route: 065
  4. DULOXETINE [Concomitant]
     Active Substance: DULOXETINE
     Indication: Neuropathy peripheral
     Dosage: UNK UNK, QD
     Route: 065
  5. ALPRAZOLAM [Concomitant]
     Active Substance: ALPRAZOLAM
     Indication: Neuropathy peripheral
     Dosage: DIVIDED: ONE QUARTER, ANOTHER QUARTER, AND HALF A TABLET AT NIGHT DAILY
     Route: 065

REACTIONS (12)
  - Blood glucose increased [Recovered/Resolved]
  - Headache [Recovered/Resolved]
  - Vomiting [Not Recovered/Not Resolved]
  - Weight decreased [Not Recovered/Not Resolved]
  - Decreased appetite [Not Recovered/Not Resolved]
  - Headache [Recovered/Resolved]
  - Abdominal discomfort [Recovered/Resolved]
  - Weight increased [Unknown]
  - Nausea [Unknown]
  - Medication error [Unknown]
  - Blood glucose fluctuation [Unknown]
  - Balance disorder [Unknown]

NARRATIVE: CASE EVENT DATE: 20250801
